FAERS Safety Report 9515844 (Version 1)
Quarter: 2013Q1

REPORT INFORMATION
  Report Type: Spontaneous
  Country: US (occurrence: None)
  Receive Date: 20130305
  Receipt Date: 20130305
  Transmission Date: 20140127
  Serious: Yes (Hospitalization, Other)
  Sender: FDA-Public Use
  Company Number: 163-21880-12122662

PATIENT
  Age: 70 Year
  Sex: Male
  Weight: 59.42 kg

DRUGS (11)
  1. REVLIMID [Suspect]
     Indication: PLASMA CELL MYELOMA
     Dosage: 25 MG, 1 IN 1 D, PO
     Route: 048
     Dates: start: 20111115
  2. ALBUTEROL SULFATE (SALBUTOMOL SULFATE) (UNKNOWN) [Concomitant]
  3. BABY ASPIRIN (ACETYLSALICYLIC ACID) (TABLETS) [Concomitant]
  4. BROVANA (ARFORMOTEROL TARTRATE) (UNKNOWN) [Concomitant]
  5. CALCIUM (CALCIUM) (UNKNOWN) [Concomitant]
  6. DEXAMETHASONE (DEXAMETHASONE) (UNKNOWN) [Concomitant]
  7. DIOVAN (VALSARTAN) (TABLETS) [Concomitant]
  8. FENTANYL (FENTANYL) (UNKNOWN) (FENTANYL) [Concomitant]
  9. JANUVIA (SITAGLIPTIN PHOSPHATE) (TABLETS) [Concomitant]
  10. MAGNESIUM (MAGNESIUM) (UNKNOWN) [Concomitant]
  11. MULTIVITAMINS (MULTIVITAMINS) (TABLETS) [Concomitant]

REACTIONS (7)
  - Pneumonia [None]
  - Dehydration [None]
  - Pulmonary thrombosis [None]
  - Thrombosis [None]
  - Pneumonia fungal [None]
  - Dysuria [None]
  - Nasopharyngitis [None]
